FAERS Safety Report 5271642-9 (Version None)
Quarter: 2007Q1

REPORT INFORMATION
  Report Type: 
  Country: None (occurrence: None)
  Receive Date: 20070321
  Receipt Date: 20070309
  Transmission Date: 20070707
  Serious: Yes (Other)
  Sender: FDA-Public Use
  Company Number: FR-PFIZER INC-2007018184

PATIENT
  Sex: Female

DRUGS (7)
  1. LYRICA [Suspect]
     Indication: FIBROMYALGIA
  2. INSULIN [Concomitant]
  3. STAGID [Concomitant]
  4. PAROXETINE HCL [Concomitant]
  5. PROPOFOL [Concomitant]
     Indication: PAIN
  6. PLAVIX [Concomitant]
  7. IKOREL [Concomitant]

REACTIONS (1)
  - BLOOD GLUCOSE INCREASED [None]
